FAERS Safety Report 5212577-7 (Version None)
Quarter: 2006Q4

REPORT INFORMATION
  Report Type: 
  Country: None (occurrence: None)
  Receive Date: 20061130
  Receipt Date: 20060609
  Transmission Date: 20070319
  Serious: Yes (Disabling)
  Sender: FDA-Public Use
  Company Number: WAES 0606USA01739

PATIENT
  Age: 49 Year
  Sex: Female

DRUGS (3)
  1. FOSAMAX [Suspect]
     Indication: RESORPTION BONE INCREASED
     Dosage: 70 MG/WKY/PO
     Route: 048
     Dates: start: 20060527
  2. IBUPROFEN [Concomitant]
  3. POTASSIUM (UNSPECIFIED) [Concomitant]

REACTIONS (3)
  - ABDOMINAL PAIN UPPER [None]
  - BONE PAIN [None]
  - MYALGIA [None]
